FAERS Safety Report 25324938 (Version 1)
Quarter: 2025Q2

REPORT INFORMATION
  Report Type: Spontaneous
  Country: US (occurrence: None)
  Receive Date: 20250516
  Receipt Date: 20250516
  Transmission Date: 20250716
  Serious: Yes (Hospitalization)
  Sender: FDA-CTU
  Company Number: None

PATIENT
  Age: 67 Year
  Sex: Female

DRUGS (2)
  1. AUSTEDO XR [Suspect]
     Active Substance: DEUTETRABENAZINE
     Indication: Dyskinesia
     Dosage: 24 MG DAILY ORAL ?
     Route: 048
  2. DUPIXENT [Suspect]
     Active Substance: DUPILUMAB

REACTIONS (3)
  - Fall [None]
  - Head injury [None]
  - Headache [None]

NARRATIVE: CASE EVENT DATE: 20250513
